FAERS Safety Report 7376806-6 (Version None)
Quarter: 2011Q1

REPORT INFORMATION
  Report Type: 
  Country: None (occurrence: None)
  Receive Date: 20110325
  Receipt Date: 20110316
  Transmission Date: 20110831
  Serious: Yes (Other)
  Sender: FDA-Public Use
  Company Number: US-ASTRAZENECA-2011SE15048

PATIENT
  Age: 44 Year
  Sex: Female

DRUGS (2)
  1. SYMBICORT [Suspect]
     Indication: BRONCHITIS
     Route: 055
  2. SYMBICORT [Suspect]
     Indication: CHRONIC OBSTRUCTIVE PULMONARY DISEASE
     Route: 055

REACTIONS (2)
  - HAEMOPTYSIS [None]
  - DRUG DOSE OMISSION [None]
